FAERS Safety Report 17630235 (Version 1)
Quarter: 2020Q2

REPORT INFORMATION
  Report Type: Spontaneous
  Country: DE (occurrence: DE)
  Receive Date: 20200406
  Receipt Date: 20200406
  Transmission Date: 20200713
  Serious: Yes (Other)
  Sender: FDA-Public Use
  Company Number: DE-PFIZER INC-2020137098

PATIENT
  Age: 54 Year
  Sex: Female
  Weight: 57 kg

DRUGS (2)
  1. SUTENT [Suspect]
     Active Substance: SUNITINIB MALATE
     Indication: GASTROINTESTINAL STROMAL TUMOUR
     Dosage: UNK
     Route: 048
     Dates: start: 20180731
  2. SUTENT [Suspect]
     Active Substance: SUNITINIB MALATE
     Dosage: UNK
     Route: 048
     Dates: start: 20180731

REACTIONS (7)
  - Hyperlipidaemia [Not Recovered/Not Resolved]
  - Low density lipoprotein increased [Unknown]
  - Hypertension [Unknown]
  - Diarrhoea [Unknown]
  - Blood triglycerides increased [Unknown]
  - High density lipoprotein increased [Unknown]
  - Hypothyroidism [Unknown]

NARRATIVE: CASE EVENT DATE: 20181113
